FAERS Safety Report 9845433 (Version 1)
Quarter: 2014Q1

REPORT INFORMATION
  Report Type: Spontaneous
  Country: US (occurrence: None)
  Receive Date: 20140122
  Receipt Date: 20140122
  Transmission Date: 20141002
  Serious: Yes (Hospitalization)
  Sender: FDA-Public Use
  Company Number: SYM-2014-14912

PATIENT
  Age: 69 Year
  Sex: Male

DRUGS (1)
  1. XENAZINE [Suspect]
     Indication: HUNTINGTON^S DISEASE
     Dosage: 2 IN 1 D
     Route: 048
     Dates: start: 20130528, end: 20140113

REACTIONS (1)
  - Hospitalisation [None]
